FAERS Safety Report 20557513 (Version 1)
Quarter: 2022Q1

REPORT INFORMATION
  Report Type: Spontaneous
  Country: FR (occurrence: None)
  Receive Date: 20220307
  Receipt Date: 20220307
  Transmission Date: 20220424
  Serious: Yes (Other)
  Sender: FDA-Public Use
  Company Number: FR-ROCHE-3036445

PATIENT
  Sex: Female

DRUGS (1)
  1. TECENTRIQ [Suspect]
     Active Substance: ATEZOLIZUMAB
     Indication: Malignant neoplasm of thymus
     Route: 065
     Dates: start: 20220203

REACTIONS (2)
  - Off label use [Unknown]
  - Mastitis [Unknown]

NARRATIVE: CASE EVENT DATE: 20220203
